FAERS Safety Report 25346189 (Version 2)
Quarter: 2025Q3

REPORT INFORMATION
  Report Type: Spontaneous
  Country: US (occurrence: US)
  Receive Date: 20250522
  Receipt Date: 20250710
  Transmission Date: 20251020
  Serious: Yes (Hospitalization, Other)
  Sender: NOVO NORDISK
  Company Number: US-NOVOPROD-1433565

PATIENT
  Age: 79 Year
  Sex: Female
  Weight: 83.1 kg

DRUGS (3)
  1. INSULIN ASPART [Suspect]
     Active Substance: INSULIN ASPART
     Indication: Type 2 diabetes mellitus
     Dates: start: 2016
  2. INSULIN ASPART [Suspect]
     Active Substance: INSULIN ASPART
     Dosage: 7 IU, BID
  3. INSULIN ASPART [Suspect]
     Active Substance: INSULIN ASPART
     Dosage: 15 IU, TID
     Route: 058

REACTIONS (3)
  - Pneumonia [Recovered/Resolved]
  - Intraocular lens implant [Unknown]
  - Wrong technique in product usage process [Unknown]

NARRATIVE: CASE EVENT DATE: 20250401
